FAERS Safety Report 19523276 (Version 1)
Quarter: 2021Q3

REPORT INFORMATION
  Report Type: Report from Study
  Country: MX (occurrence: MX)
  Receive Date: 20210712
  Receipt Date: 20210712
  Transmission Date: 20211014
  Serious: Yes (Other)
  Sender: FDA-Public Use
  Company Number: MX-INCYTE CORPORATION-2021IN006046

PATIENT

DRUGS (2)
  1. JAKAVI [Suspect]
     Active Substance: RUXOLITINIB
     Indication: POLYCYTHAEMIA VERA
     Dosage: 1 DF, QD (20 MG)
     Route: 048
  2. JAKAVI [Suspect]
     Active Substance: RUXOLITINIB
     Indication: MYELOFIBROSIS

REACTIONS (7)
  - Hiatus hernia [Unknown]
  - Stress [Unknown]
  - Inappropriate schedule of product administration [Unknown]
  - Oesophageal food impaction [Unknown]
  - Nervousness [Unknown]
  - Asthenia [Unknown]
  - Post procedural complication [Unknown]
